FAERS Safety Report 8796027 (Version 1)
Quarter: 2012Q4

REPORT INFORMATION
  Report Type: 
  Country: PR (occurrence: PR)
  Receive Date: 20120919
  Receipt Date: 20120919
  Transmission Date: 20130627
  Serious: Yes (Other)
  Sender: FDA-Public Use
  Company Number: PR-BAYER-2012-094106

PATIENT
  Age: 61 Year
  Sex: Male

DRUGS (1)
  1. NEXAVAR [Suspect]
     Indication: HEPATIC NEOPLASM MALIGNANT
     Dosage: 400 mg, BID

REACTIONS (3)
  - Asthenia [Not Recovered/Not Resolved]
  - Aphagia [Not Recovered/Not Resolved]
  - Hepatic pain [Not Recovered/Not Resolved]
